FAERS Safety Report 5688804-9 (Version None)
Quarter: 2008Q1

REPORT INFORMATION
  Report Type: 
  Country: None (occurrence: None)
  Receive Date: 20080331
  Receipt Date: 20080325
  Transmission Date: 20080703
  Serious: Yes (Hospitalization, Other)
  Sender: FDA-Public Use
  Company Number: US-BRISTOL-MYERS SQUIBB COMPANY-14101877

PATIENT
  Age: 69 Year
  Sex: Female

DRUGS (9)
  1. SPRYCEL [Suspect]
     Indication: CHRONIC MYELOID LEUKAEMIA
     Dosage: INTERRUPTED ON 28-JAN-2008.
     Route: 048
     Dates: start: 20080116
  2. LASIX [Suspect]
  3. KLOR-CON [Concomitant]
  4. CALCIUM [Concomitant]
     Dosage: TABLET FORM.
  5. MAGNESIUM OXIDE [Concomitant]
  6. LISINOPRIL [Concomitant]
  7. METAMUCIL [Concomitant]
  8. PLAVIX [Concomitant]
  9. FOSAMAX [Concomitant]

REACTIONS (7)
  - ANOREXIA [None]
  - DEHYDRATION [None]
  - DIARRHOEA [None]
  - HYPOKALAEMIA [None]
  - NAUSEA [None]
  - RENAL FAILURE ACUTE [None]
  - VOMITING [None]
